FAERS Safety Report 16777163 (Version 1)
Quarter: 2019Q4

REPORT INFORMATION
  Report Type: Spontaneous
  Country: US (occurrence: US)
  Receive Date: 20190905
  Receipt Date: 20190905
  Transmission Date: 20200122
  Serious: Yes (Other)
  Sender: FDA-Public Use
  Company Number: None

PATIENT
  Age: 65 Year
  Sex: Female
  Weight: 83.25 kg

DRUGS (4)
  1. BOTOX [Suspect]
     Active Substance: ONABOTULINUMTOXINA
  2. VITAMIN C AND D [Concomitant]
  3. CLONIDINE. [Concomitant]
     Active Substance: CLONIDINE
  4. LOSARTAN. [Concomitant]
     Active Substance: LOSARTAN

REACTIONS (8)
  - Malaise [None]
  - Pain in extremity [None]
  - Sleep disorder [None]
  - Vision blurred [None]
  - Anxiety [None]
  - Pollakiuria [None]
  - Headache [None]
  - Fatigue [None]

NARRATIVE: CASE EVENT DATE: 20190727
